FAERS Safety Report 9659722 (Version 1)
Quarter: 2013Q4

REPORT INFORMATION
  Report Type: Spontaneous
  Country: US (occurrence: US)
  Receive Date: 20131031
  Receipt Date: 20131031
  Transmission Date: 20140711
  Serious: Yes (Hospitalization)
  Sender: FDA-Public Use
  Company Number: US-PFIZER INC-2013309222

PATIENT
  Age: 73 Year
  Sex: Female
  Weight: 66.21 kg

DRUGS (2)
  1. CYKLOKAPRON [Suspect]
     Indication: KNEE ARTHROPLASTY
     Dosage: 1300 MG, UNK
     Dates: start: 20130829
  2. ATORVASTATIN CALCIUM [Concomitant]
     Indication: HYPERCHOLESTEROLAEMIA
     Dosage: UNK

REACTIONS (1)
  - Cerebrovascular accident [Unknown]
